FAERS Safety Report 9407064 (Version 2)
Quarter: 2013Q3

REPORT INFORMATION
  Report Type: Spontaneous
  Country: US (occurrence: US)
  Receive Date: 20130718
  Receipt Date: 20130724
  Transmission Date: 20140515
  Serious: Yes (Other)
  Sender: FDA-Public Use
  Company Number: US-009507513-1307USA008314

PATIENT
  Sex: Female
  Weight: 97.51 kg

DRUGS (5)
  1. NUVARING [Suspect]
     Indication: CONTRACEPTION
     Dosage: UNK
     Route: 067
     Dates: start: 20110420, end: 201108
  2. NUVARING [Suspect]
     Dosage: UNK
     Route: 067
     Dates: start: 20060125, end: 200604
  3. NUVARING [Suspect]
     Dosage: UNK
     Route: 067
     Dates: start: 20070326, end: 200709
  4. NUVARING [Suspect]
     Dosage: UNK
     Route: 067
     Dates: start: 20100513, end: 201008
  5. VITAMINS (UNSPECIFIED) [Concomitant]
     Indication: PRENATAL CARE
     Dosage: UNK
     Dates: start: 2012

REACTIONS (2)
  - Abortion spontaneous [Unknown]
  - Maternal exposure before pregnancy [Recovered/Resolved]
